FAERS Safety Report 16411536 (Version 1)
Quarter: 2019Q2

REPORT INFORMATION
  Report Type: Spontaneous
  Country: CN (occurrence: CN)
  Receive Date: 20190610
  Receipt Date: 20190610
  Transmission Date: 20190711
  Serious: Yes (Hospitalization)
  Sender: FDA-Public Use
  Company Number: CN-BAXTER-2019BAX011259

PATIENT
  Age: 60 Year
  Sex: Male
  Weight: 60 kg

DRUGS (12)
  1. 0.9% SODIUM CHLORIDE INJECTION [Suspect]
     Active Substance: SODIUM CHLORIDE
     Dosage: ETOPOSIDE 86 MG + EPIRUBICIN HYDROCHLORIDE 20 MG + VINDESINE SULFATE 1 MG + 0.9% NS ON DAYS 1-4
     Route: 041
     Dates: start: 20190312, end: 20190315
  2. 0.9% SODIUM CHLORIDE INJECTION [Suspect]
     Active Substance: SODIUM CHLORIDE
     Indication: MEDICATION DILUTION
     Dosage: CYCLOPHOSPHAMIDE 1.2G + 0.9% NS ON DAY 5
     Route: 042
     Dates: start: 20190316, end: 20190316
  3. EPIRUBICIN HYDROCHLORIDE. [Suspect]
     Active Substance: EPIRUBICIN HYDROCHLORIDE
     Indication: LYMPHOMA
     Dosage: ETOPOSIDE 86 MG + EPIRUBICIN HYDROCHLORIDE + VINDESINE SULFATE 1 MG + 0.9% NS 500 ML ON DAYS 1-4
     Route: 041
     Dates: start: 20190312, end: 20190315
  4. VINDESINE SULFATE [Suspect]
     Active Substance: VINDESINE SULFATE
     Dosage: DOSE RE-INTRODUCED. ETOPOSIDE + EPIRUBICIN HYDROCHLORIDE + VINDESINE SULFATE + 0.9% NS
     Route: 041
  5. 0.9% SODIUM CHLORIDE INJECTION [Suspect]
     Active Substance: SODIUM CHLORIDE
     Dosage: DOSE RE-INTRODUCED. ETOPOSIDE + EPIRUBICIN HYDROCHLORIDE + VINDESINE SULFATE + 0.9% NS
     Route: 041
  6. ETOPOSIDE. [Suspect]
     Active Substance: ETOPOSIDE
     Dosage: DOSE RE-INTRODUCED. ETOPOSIDE + EPIRUBICIN HYDROCHLORIDE + VINDESINE SULFATE + 0.9% NS
     Route: 041
  7. ENDOXAN [Suspect]
     Active Substance: CYCLOPHOSPHAMIDE
     Indication: LYMPHOMA
     Dosage: ENDOXAN + 0.9% NS (NORMAL SALINE) 40 ML ON DAY 5
     Route: 042
     Dates: start: 20190316, end: 20190316
  8. ENDOXAN [Suspect]
     Active Substance: CYCLOPHOSPHAMIDE
     Dosage: DOSE RE-INTRODUCED. ENDOXAN + 0.9% NS
     Route: 042
  9. ETOPOSIDE. [Suspect]
     Active Substance: ETOPOSIDE
     Indication: LYMPHOMA
     Dosage: ETOPOSIDE + EPIRUBICIN HYDROCHLORIDE 20 MG + VINDESINE SULFATE 1 MG + 0.9% NS 500 ML ON DAYS 1-4
     Route: 041
     Dates: start: 20190312, end: 20190315
  10. EPIRUBICIN HYDROCHLORIDE. [Suspect]
     Active Substance: EPIRUBICIN HYDROCHLORIDE
     Dosage: DOSE RE-INTRODUCED. ETOPOSIDE + EPIRUBICIN HYDROCHLORIDE + VINDESINE SULFATE + 0.9% NS
     Route: 041
  11. VINDESINE SULFATE [Suspect]
     Active Substance: VINDESINE SULFATE
     Indication: LYMPHOMA
     Dosage: ETOPOSIDE 86 MG + EPIRUBICIN HYDROCHLORIDE 20 MG + VINDESINE SULFATE + 0.9% NS 500 ML ON DAYS 1-4
     Route: 041
     Dates: start: 20190312, end: 20190315
  12. 0.9% SODIUM CHLORIDE INJECTION [Suspect]
     Active Substance: SODIUM CHLORIDE
     Dosage: DOSE RE-INTRODUCED. CYCLOPHOSPHAMIDE + 0.9% NS
     Route: 042

REACTIONS (1)
  - Bone marrow failure [Recovering/Resolving]

NARRATIVE: CASE EVENT DATE: 20190325
